FAERS Safety Report 4364521-2 (Version None)
Quarter: 2004Q2

REPORT INFORMATION
  Report Type: 
  Country: None (occurrence: None)
  Receive Date: 20040519
  Receipt Date: 20040504
  Transmission Date: 20050107
  Serious: Yes (Hospitalization)
  Sender: FDA-Public Use
  Company Number: 2002-BP-06055RO

PATIENT
  Age: 36 Year
  Sex: Male

DRUGS (3)
  1. PREDNISONE TAB [Suspect]
     Dates: start: 20021017
  2. BMS224818 (BMS 224818-INVESTIGATIONAL) [Suspect]
     Indication: RENAL TRANSPLANT
     Dosage: 990 MG, IV
     Route: 042
     Dates: start: 20021015, end: 20021112
  3. CELLCEPT [Suspect]
     Indication: RENAL TRANSPLANT
     Dosage: 2000 MG, PO
     Route: 048
     Dates: start: 20021015

REACTIONS (4)
  - DIARRHOEA [None]
  - KIDNEY TRANSPLANT REJECTION [None]
  - PYREXIA [None]
  - URINARY TRACT INFECTION ENTEROCOCCAL [None]
